FAERS Safety Report 4795495-8 (Version None)
Quarter: 2005Q4

REPORT INFORMATION
  Report Type: 
  Country: None (occurrence: None)
  Receive Date: 20051012
  Receipt Date: 20050722
  Transmission Date: 20060501
  Serious: Yes (Other)
  Sender: FDA-Public Use
  Company Number: US-ROCHE-411945

PATIENT
  Age: 45 Year
  Sex: Male

DRUGS (2)
  1. PEGASYS [Suspect]
     Indication: DRUG USE FOR UNKNOWN INDICATION
     Dosage: ROUTE: INJECTABLE
     Route: 050
     Dates: start: 20050525
  2. RIBAVIRIN [Suspect]
     Indication: DRUG USE FOR UNKNOWN INDICATION
     Route: 048
     Dates: start: 20050525

REACTIONS (7)
  - ARTHRALGIA [None]
  - BACK PAIN [None]
  - DRY SKIN [None]
  - FATIGUE [None]
  - GLAUCOMA [None]
  - PHOTOSENSITIVITY REACTION [None]
  - PRODUCTIVE COUGH [None]
